FAERS Safety Report 19065009 (Version 1)
Quarter: 2021Q1

REPORT INFORMATION
  Report Type: Spontaneous
  Country: US (occurrence: US)
  Receive Date: 20210326
  Receipt Date: 20210326
  Transmission Date: 20210420
  Serious: No
  Sender: FDA-Public Use
  Company Number: US-ROCHE-2757673

PATIENT
  Sex: Female

DRUGS (2)
  1. HERCEPTIN HYLECTA [Suspect]
     Active Substance: HYALURONIDASE-OYSK\TRASTUZUMAB
     Indication: HER2 POSITIVE BREAST CANCER
     Route: 058
     Dates: start: 20200601
  2. PACLITAXEL. [Concomitant]
     Active Substance: PACLITAXEL
     Indication: BREAST CANCER
     Route: 065
     Dates: start: 202006, end: 2020

REACTIONS (7)
  - Pain in extremity [Unknown]
  - Insomnia [Unknown]
  - Rhinorrhoea [Unknown]
  - Neuropathy peripheral [Unknown]
  - Acne cystic [Unknown]
  - Alopecia [Unknown]
  - Depression [Unknown]
